FAERS Safety Report 8876168 (Version 4)
Quarter: 2013Q3

REPORT INFORMATION
  Report Type: Spontaneous
  Country: FR (occurrence: FR)
  Receive Date: 20121030
  Receipt Date: 20130701
  Transmission Date: 20140515
  Serious: Yes (Life-Threatening, Hospitalization, Other)
  Sender: FDA-Public Use
  Company Number: FR-UCBSA-069793

PATIENT
  Age: 72 Year
  Sex: Male

DRUGS (8)
  1. CIMZIA [Suspect]
     Indication: RHEUMATOID ARTHRITIS
     Route: 058
     Dates: start: 201010, end: 201203
  2. NOVATREX [Concomitant]
     Dates: start: 200902
  3. PARACETAMOL [Concomitant]
     Dosage: 3 GM
     Dates: start: 200902
  4. KARDEGIC [Concomitant]
     Dosage: 75MG DAILY
  5. CARDENSIEL [Concomitant]
  6. RAMIPRIL [Concomitant]
  7. INEGY [Concomitant]
  8. INEXIUM [Concomitant]
     Dosage: 20 MG DAILY

REACTIONS (1)
  - Prostate cancer [Not Recovered/Not Resolved]
